FAERS Safety Report 7564704-4 (Version None)
Quarter: 2011Q2

REPORT INFORMATION
  Report Type: 
  Country: None (occurrence: None)
  Receive Date: 20110622
  Receipt Date: 20101018
  Transmission Date: 20111010
  Serious: Yes (Death)
  Sender: FDA-Public Use
  Company Number: US-MYLANLABS-2010S1017044

PATIENT
  Age: 32 Year
  Sex: Male

DRUGS (3)
  1. CLONAZEPAM [Concomitant]
  2. CLOZAPINE [Suspect]
     Route: 048
     Dates: end: 20100911
  3. COGENTIN [Concomitant]

REACTIONS (1)
  - DEATH [None]
